FAERS Safety Report 25651301 (Version 1)
Quarter: 2025Q3

REPORT INFORMATION
  Report Type: Spontaneous
  Country: EU (occurrence: EU)
  Receive Date: 20250806
  Receipt Date: 20250806
  Transmission Date: 20251020
  Serious: Yes (Other)
  Sender: TEVA
  Company Number: None

PATIENT
  Age: 43 Year
  Sex: Male

DRUGS (3)
  1. FLUOROURACIL [Suspect]
     Active Substance: FLUOROURACIL
     Indication: Colon cancer
     Dosage: FLUOROURACILE TEVA; ADMINISTRATION OCCURS FIRST AS A BOLUS WITH 473.20 MG AND THEN SUBSEQUENTLY 2...
     Route: 042
     Dates: start: 20250319, end: 20250714
  2. IRINOTECAN [Concomitant]
     Active Substance: IRINOTECAN
     Indication: Product used for unknown indication
  3. ZALTRAP [Concomitant]
     Active Substance: ZIV-AFLIBERCEPT
     Indication: Product used for unknown indication

REACTIONS (2)
  - Pyrexia [Recovering/Resolving]
  - Anaemia [Recovering/Resolving]

NARRATIVE: CASE EVENT DATE: 20250716
